FAERS Safety Report 7898122-6 (Version None)
Quarter: 2011Q4

REPORT INFORMATION
  Report Type: 
  Country: None (occurrence: None)
  Receive Date: 20111107
  Receipt Date: 20111027
  Transmission Date: 20120403
  Serious: No
  Sender: FDA-Public Use
  Company Number: US-B.I. PHARMACEUTICALS,INC./RIDGEFIELD-2011-BP-25121BP

PATIENT
  Sex: Male

DRUGS (4)
  1. FISH OIL [Concomitant]
     Indication: BLOOD CHOLESTEROL INCREASED
     Route: 048
  2. PRAVASTATIN [Concomitant]
     Indication: BLOOD CHOLESTEROL INCREASED
     Route: 048
  3. PRADAXA [Suspect]
     Indication: ATRIAL FIBRILLATION
     Dosage: 300 MG
     Route: 048
     Dates: start: 20080101
  4. CARVEDILOL [Concomitant]
     Indication: ATRIAL FIBRILLATION
     Route: 048

REACTIONS (3)
  - FALL [None]
  - ARTHRALGIA [None]
  - GROIN PAIN [None]
